FAERS Safety Report 7672993-0 (Version None)
Quarter: 2011Q3

REPORT INFORMATION
  Report Type: 
  Country: None (occurrence: None)
  Receive Date: 20110809
  Receipt Date: 20110718
  Transmission Date: 20111222
  Serious: Yes (Other)
  Sender: FDA-Public Use
  Company Number: JP-SPECTRUM PHARMACEUTICALS, INC.-11-Z-JP-00135

PATIENT

DRUGS (2)
  1. ZEVALIN [Suspect]
     Dosage: UNK UNK, SINGLE
     Route: 042
     Dates: start: 20110111, end: 20110111
  2. ZEVALIN [Suspect]
     Indication: LYMPHOMA
     Dosage: UNK UNK, SINGLE
     Route: 042
     Dates: start: 20110121, end: 20110121

REACTIONS (1)
  - HEPATIC ENZYME INCREASED [None]
